FAERS Safety Report 8596230-8 (Version None)
Quarter: 2012Q3

REPORT INFORMATION
  Report Type: 
  Country: None (occurrence: None)
  Receive Date: 20120815
  Receipt Date: 20120806
  Transmission Date: 20120928
  Serious: Yes (Hospitalization)
  Sender: FDA-Public Use
  Company Number: US-ASTRAZENECA-2010SE44942

PATIENT
  Age: 64 Year
  Sex: Male

DRUGS (8)
  1. NEXIUM [Suspect]
     Indication: GASTROOESOPHAGEAL REFLUX DISEASE
     Route: 048
  2. NEXIUM [Suspect]
     Indication: HIATUS HERNIA
     Route: 048
  3. NEXIUM [Suspect]
     Route: 048
  4. NEXIUM [Suspect]
     Route: 048
  5. PREVACID [Concomitant]
  6. NEXIUM [Suspect]
     Indication: BARRETT'S OESOPHAGUS
     Route: 048
  7. NEXIUM [Suspect]
     Route: 048
  8. PRILOSEC [Suspect]
     Route: 048

REACTIONS (10)
  - CONDITION AGGRAVATED [None]
  - OFF LABEL USE [None]
  - CIRCUMSTANCE OR INFORMATION CAPABLE OF LEADING TO MEDICATION ERROR [None]
  - DEMENTIA [None]
  - CARDIAC DISORDER [None]
  - GASTROOESOPHAGEAL REFLUX DISEASE [None]
  - CHOKING [None]
  - DELIRIUM [None]
  - ADVERSE EVENT [None]
  - DRUG INEFFECTIVE [None]
